FAERS Safety Report 23496576 (Version 1)
Quarter: 2024Q1

REPORT INFORMATION
  Report Type: Spontaneous
  Country: US (occurrence: None)
  Receive Date: 20240207
  Receipt Date: 20240207
  Transmission Date: 20240410
  Serious: Yes (Other)
  Sender: FDA-Public Use
  Company Number: None

PATIENT
  Age: 27 Year
  Sex: Female
  Weight: 42.75 kg

DRUGS (3)
  1. LA ROCHE-POSAY EFFACLAR DUO DUAL ACTION ACNE TREATMENT [Suspect]
     Active Substance: BENZOYL PEROXIDE
     Indication: Acne
     Route: 061
  2. LA ROCHE-POSAY EFFACLAR DUO DUAL ACTION ACNE TREATMENT [Suspect]
     Active Substance: BENZOYL PEROXIDE
     Indication: Acne
  3. Pre-natal gummy [Concomitant]

REACTIONS (4)
  - Drug hypersensitivity [None]
  - Product formulation issue [None]
  - Product label confusion [None]
  - Fatigue [None]

NARRATIVE: CASE EVENT DATE: 20240205
